FAERS Safety Report 20693842 (Version 2)
Quarter: 2022Q2

REPORT INFORMATION
  Report Type: Spontaneous
  Country: JP (occurrence: JP)
  Receive Date: 20220411
  Receipt Date: 20220428
  Transmission Date: 20220721
  Serious: Yes (Death, Hospitalization)
  Sender: FDA-Public Use
  Company Number: JP-MTPC-MTPC2021-0027339

PATIENT
  Age: 80 Year
  Sex: Female

DRUGS (13)
  1. VADADUSTAT [Suspect]
     Active Substance: VADADUSTAT
     Indication: Nephrogenic anaemia
     Dosage: 300 MILLIGRAM, QD
     Route: 048
     Dates: start: 20210317, end: 20210927
  2. VADADUSTAT [Suspect]
     Active Substance: VADADUSTAT
     Dosage: 450 MILLIGRAM, QD
     Route: 048
     Dates: start: 20210929, end: 20211107
  3. EDARAVONE [Suspect]
     Active Substance: EDARAVONE
     Dosage: 30 MILLIGRAM, QD
     Route: 041
     Dates: start: 20211023, end: 20211101
  4. AMLODIPINE BESYLATE\IRBESARTAN [Concomitant]
     Active Substance: AMLODIPINE BESYLATE\IRBESARTAN
     Dosage: 1 DOSAGE FORM, QD
     Route: 048
     Dates: end: 20211023
  5. CELIPROLOL HYDROCHLORIDE [Concomitant]
     Active Substance: CELIPROLOL HYDROCHLORIDE
     Dosage: 200 MILLIGRAM, QD
     Route: 048
     Dates: end: 20211023
  6. HYDROCHLOROTHIAZIDE [Concomitant]
     Active Substance: HYDROCHLOROTHIAZIDE
     Dosage: 12.5 MILLIGRAM, QD
     Route: 048
     Dates: end: 20211023
  7. LANSOPRAZOLE [Concomitant]
     Active Substance: LANSOPRAZOLE
     Dosage: 15 MILLIGRAM, QD
     Route: 048
     Dates: end: 20211023
  8. POLAPREZINC [Concomitant]
     Active Substance: POLAPREZINC
     Dosage: 75 MILLIGRAM, BID
     Route: 048
     Dates: end: 20211023
  9. MOSAPRIDE CITRATE [Concomitant]
     Active Substance: MOSAPRIDE CITRATE
     Dosage: 5 MILLIGRAM, TID
     Route: 048
     Dates: end: 20211023
  10. SODIUM FERROUS CITRATE [Concomitant]
     Active Substance: SODIUM FERROUS CITRATE
     Dosage: 50 MILLIGRAM, BID
     Route: 048
     Dates: end: 20211023
  11. Eurodin [Concomitant]
     Dosage: 2 MILLIGRAM, QD
     Route: 048
     Dates: end: 20211023
  12. ZOLPIDEM TARTRATE [Concomitant]
     Active Substance: ZOLPIDEM TARTRATE
     Dosage: UNK UNK, QD
     Route: 048
     Dates: end: 20211023
  13. KREMEZIN [Concomitant]
     Active Substance: ACTIVATED CHARCOAL
     Dosage: 2 GRAM, BID
     Route: 048
     Dates: end: 20211023

REACTIONS (2)
  - Cerebral infarction [Recovered/Resolved with Sequelae]
  - Myocardial infarction [Fatal]

NARRATIVE: CASE EVENT DATE: 20211022
